FAERS Safety Report 8347483-2 (Version None)
Quarter: 2012Q2

REPORT INFORMATION
  Report Type: 
  Country: None (occurrence: None)
  Receive Date: 20120509
  Receipt Date: 20120501
  Transmission Date: 20120825
  Serious: Yes (Hospitalization)
  Sender: FDA-Public Use
  Company Number: US-ASTRAZENECA-2012SE28496

PATIENT
  Sex: Male

DRUGS (2)
  1. PRILOSEC [Suspect]
     Route: 048
  2. PRILOSEC OTC [Suspect]
     Route: 048

REACTIONS (6)
  - CHEST DISCOMFORT [None]
  - HEART RATE INCREASED [None]
  - CORONARY ARTERY OCCLUSION [None]
  - VOMITING [None]
  - DYSPEPSIA [None]
  - FLATULENCE [None]
